FAERS Safety Report 16956244 (Version 2)
Quarter: 2019Q4

REPORT INFORMATION
  Report Type: Spontaneous
  Country: JP (occurrence: JP)
  Receive Date: 20191024
  Receipt Date: 20191029
  Transmission Date: 20200122
  Serious: Yes (Other)
  Sender: FDA-Public Use
  Company Number: JP-ROCHE-2450260

PATIENT
  Age: 68 Year
  Sex: Male

DRUGS (1)
  1. XELODA [Suspect]
     Active Substance: CAPECITABINE
     Indication: RECTAL CANCER
     Dosage: DOSE UNKNOWN
     Route: 048

REACTIONS (2)
  - Enterocolitis [Recovering/Resolving]
  - Dysuria [Recovering/Resolving]
